FAERS Safety Report 10030392 (Version 1)
Quarter: 2014Q1

REPORT INFORMATION
  Report Type: Spontaneous
  Country: US (occurrence: US)
  Receive Date: 20140323
  Receipt Date: 20140323
  Transmission Date: 20141002
  Serious: No
  Sender: FDA-Public Use
  Company Number: US-ALLERGAN-1313326US

PATIENT
  Age: 48 Year
  Sex: Female

DRUGS (3)
  1. LATISSE 0.03% [Suspect]
     Indication: GROWTH OF EYELASHES
     Dosage: UNK
     Route: 061
  2. LATISSE 0.03% [Suspect]
     Dosage: 2 GTT, QHS
     Route: 061
  3. LATISSE 0.03% [Suspect]
     Dosage: 1 GTT, QHS
     Route: 061
     Dates: start: 201302

REACTIONS (9)
  - Blepharal pigmentation [Not Recovered/Not Resolved]
  - Wrong technique in drug usage process [Unknown]
  - Incorrect dose administered [Unknown]
  - Inappropriate schedule of drug administration [Unknown]
  - Madarosis [Not Recovered/Not Resolved]
  - Dry eye [Not Recovered/Not Resolved]
  - Scleral hyperaemia [Recovered/Resolved]
  - Ocular discomfort [Unknown]
  - Eyelids pruritus [Not Recovered/Not Resolved]
